FAERS Safety Report 7298787-6 (Version None)
Quarter: 2011Q1

REPORT INFORMATION
  Report Type: 
  Country: None (occurrence: None)
  Receive Date: 20110217
  Receipt Date: 20110214
  Transmission Date: 20110831
  Serious: Yes (Other)
  Sender: FDA-Public Use
  Company Number: ES-PFIZER INC-2011031976

PATIENT
  Age: 60 Year
  Sex: Female

DRUGS (1)
  1. RAPAMUNE [Suspect]
     Indication: ANGIOMYOLIPOMA
     Dosage: 2 MG, UNK
     Route: 048
     Dates: start: 20100420, end: 20101027

REACTIONS (2)
  - INTERSTITIAL LUNG DISEASE [None]
  - DYSPNOEA [None]
